FAERS Safety Report 5140394-5 (Version None)
Quarter: 2006Q4

REPORT INFORMATION
  Report Type: 
  Country: None (occurrence: None)
  Receive Date: 20061031
  Receipt Date: 20060810
  Transmission Date: 20070319
  Serious: Yes (Hospitalization, Other)
  Sender: FDA-Public Use
  Company Number: US-ELI_LILLY_AND_COMPANY-US200608002437

PATIENT
  Age: 57 Year
  Sex: Female

DRUGS (1)
  1. FORTEO [Suspect]
     Indication: OSTEOPOROSIS
     Dates: start: 20050317, end: 20060709

REACTIONS (10)
  - ARRHYTHMIA [None]
  - CARDIAC ARREST [None]
  - CEREBRAL HAEMORRHAGE [None]
  - FACIAL BONES FRACTURE [None]
  - FALL [None]
  - HAEMORRHAGE [None]
  - HUMERUS FRACTURE [None]
  - MYOCARDIAL INFARCTION [None]
  - RENAL FAILURE ACUTE [None]
  - SKIN LACERATION [None]
